FAERS Safety Report 12158250 (Version 1)
Quarter: 2016Q1

REPORT INFORMATION
  Report Type: Spontaneous
  Country: US (occurrence: US)
  Receive Date: 20160308
  Receipt Date: 20160308
  Transmission Date: 20160526
  Serious: No
  Sender: FDA-Public Use
  Company Number: US-JNJFOC-20150308144

PATIENT
  Sex: Female

DRUGS (6)
  1. MUCINEX [Concomitant]
     Active Substance: GUAIFENESIN
  2. IMBRUVICA [Suspect]
     Active Substance: IBRUTINIB
     Indication: CHRONIC LYMPHOCYTIC LEUKAEMIA
     Route: 048
     Dates: start: 201404
  3. SIMVASTATIN. [Concomitant]
     Active Substance: SIMVASTATIN
  4. RISPERIDONE. [Concomitant]
     Active Substance: RISPERIDONE
  5. LORATADINE. [Concomitant]
     Active Substance: LORATADINE
  6. SYMBICORT [Concomitant]
     Active Substance: BUDESONIDE\FORMOTEROL FUMARATE DIHYDRATE

REACTIONS (2)
  - Dysphagia [Not Recovered/Not Resolved]
  - Drug dose omission [Unknown]
